FAERS Safety Report 18934937 (Version 1)
Quarter: 2021Q1

REPORT INFORMATION
  Report Type: Spontaneous
  Country: US (occurrence: US)
  Receive Date: 20210224
  Receipt Date: 20210224
  Transmission Date: 20210420
  Serious: No
  Sender: FDA-Public Use
  Company Number: US-BAYER-2021-081480

PATIENT
  Age: 89 Year
  Sex: Male

DRUGS (1)
  1. MIRALAX [Suspect]
     Active Substance: POLYETHYLENE GLYCOL 3350
     Dosage: I  FILLED THE PRODUCT TO THE RED LINE INSIDE THE CAP AND PLACED IT IN LIQUID AND DRANK IT. DOSE
     Route: 065

REACTIONS (2)
  - Expired product administered [Unknown]
  - Wrong technique in product usage process [Unknown]
